FAERS Safety Report 5234738-3 (Version None)
Quarter: 2007Q1

REPORT INFORMATION
  Report Type: 
  Country: None (occurrence: None)
  Receive Date: 20070209
  Receipt Date: 20070129
  Transmission Date: 20070707
  Serious: Yes (Death, Hospitalization, Other)
  Sender: FDA-Public Use
  Company Number: US-PFIZER INC-2006110414

PATIENT
  Sex: Female
  Weight: 97.5 kg

DRUGS (1)
  1. BEXTRA [Suspect]
     Indication: ARTHRALGIA
     Route: 065
     Dates: start: 20040909, end: 20040924

REACTIONS (2)
  - CARDIOVASCULAR DISORDER [None]
  - PULMONARY EMBOLISM [None]
